FAERS Safety Report 18655381 (Version 5)
Quarter: 2021Q2

REPORT INFORMATION
  Report Type: Report from Study
  Country: AR (occurrence: AR)
  Receive Date: 20201223
  Receipt Date: 20210423
  Transmission Date: 20210717
  Serious: Yes (Other)
  Sender: FDA-Public Use
  Company Number: NVSC2020AR226522

PATIENT
  Age: 29 Year
  Sex: Male

DRUGS (3)
  1. TASIGNA [Suspect]
     Active Substance: NILOTINIB
     Indication: CHRONIC MYELOID LEUKAEMIA
     Dosage: 600 MG, QD
     Route: 048
     Dates: start: 20190215
  2. TASIGNA [Suspect]
     Active Substance: NILOTINIB
     Dosage: 600 MG, BID
     Route: 048
     Dates: start: 20200215
  3. TASIGNA [Suspect]
     Active Substance: NILOTINIB
     Dosage: 600 MG, QD
     Route: 048
     Dates: start: 20190215

REACTIONS (14)
  - Infection [Recovering/Resolving]
  - Lymphadenopathy [Unknown]
  - Discomfort [Recovering/Resolving]
  - Condition aggravated [Unknown]
  - Dysstasia [Recovering/Resolving]
  - Hypersensitivity [Unknown]
  - Chronic myeloid leukaemia [Recovering/Resolving]
  - General physical health deterioration [Recovering/Resolving]
  - Product supply issue [Unknown]
  - Acne [Unknown]
  - Inappropriate schedule of product administration [Unknown]
  - Product dose omission issue [Unknown]
  - Malignant neoplasm progression [Recovering/Resolving]
  - Chest pain [Unknown]

NARRATIVE: CASE EVENT DATE: 20200803
